FAERS Safety Report 8797803 (Version 1)
Quarter: 2012Q4

REPORT INFORMATION
  Report Type: Spontaneous
  Country: JP (occurrence: None)
  Receive Date: 20120913
  Receipt Date: 20120913
  Transmission Date: 20130627
  Serious: Yes (Hospitalization, Other)
  Sender: FDA-Public Use
  Company Number: 2004JP001178

PATIENT
  Age: 8 Year
  Sex: Female
  Weight: 25 kg

DRUGS (7)
  1. PROGRAF [Suspect]
     Route: 048
     Dates: start: 20040602, end: 20040604
  2. PROGRAF [Suspect]
     Route: 048
     Dates: start: 200402, end: 20040601
  3. PROGRAF [Suspect]
     Route: 048
     Dates: start: 20040612
  4. BAXKTAR (SULFAMETHOXAZOLE, TRIMETHOPRIM) [Concomitant]
  5. ZOVIRAX ^BURROUGHS^ (ACICLOVIR) [Concomitant]
  6. PREDONINE (PREDNISOLONE) [Concomitant]
  7. GASTER [Concomitant]

REACTIONS (3)
  - Drug ineffective [None]
  - Chronic graft versus host disease [None]
  - Posterior reversible encephalopathy syndrome [None]
